FAERS Safety Report 9953226 (Version 3)
Quarter: 2014Q1

REPORT INFORMATION
  Report Type: Report from Study
  Country: US (occurrence: US)
  Receive Date: 20140304
  Receipt Date: 20140312
  Transmission Date: 20141002
  Serious: Yes (Disabling, Other)
  Sender: FDA-Public Use
  Company Number: US-NAPPMUNDI-USA-2013-0108688

PATIENT
  Age: 59 Year
  Sex: Male
  Weight: 96.15 kg

DRUGS (6)
  1. OXY CR TAB [Suspect]
     Indication: JOINT EFFUSION
     Dosage: UNK
     Dates: start: 2012
  2. OXY CR TAB [Suspect]
     Indication: PAIN
     Dosage: 30 MG, BID
     Route: 048
     Dates: start: 20130425
  3. OXYCODONE HCL IMMEDIATE RELEASE (91-490) [Suspect]
     Indication: PAIN
     Dosage: 5 MG, Q4H
     Route: 048
  4. NORCO [Suspect]
     Indication: PAIN
     Dosage: 10/325 QID
     Route: 048
  5. ZOFRAN                             /00955301/ [Concomitant]
     Indication: PRODUCT USED FOR UNKNOWN INDICATION
     Dosage: 8 MG, UNK
  6. ADDERALL [Concomitant]
     Indication: PRODUCT USED FOR UNKNOWN INDICATION
     Dosage: 20 MG, UNK
     Route: 048

REACTIONS (3)
  - Road traffic accident [Recovered/Resolved]
  - Humerus fracture [Not Recovered/Not Resolved]
  - Treatment noncompliance [Unknown]
